FAERS Safety Report 24837042 (Version 1)
Quarter: 2025Q1

REPORT INFORMATION
  Report Type: Spontaneous
  Country: US (occurrence: US)
  Receive Date: 20250113
  Receipt Date: 20250113
  Transmission Date: 20250408
  Serious: No
  Sender: INCYTE
  Company Number: US-INCYTE CORPORATION-2025IN000136

PATIENT

DRUGS (3)
  1. JAKAFI [Suspect]
     Active Substance: RUXOLITINIB
     Indication: Polycythaemia vera
     Route: 065
     Dates: start: 2021
  2. JAKAFI [Suspect]
     Active Substance: RUXOLITINIB
     Dosage: 20 MILLIGRAM, QD (ON MONDAY AND THURSDAY)
     Route: 048
     Dates: start: 20240720
  3. JAKAFI [Suspect]
     Active Substance: RUXOLITINIB
     Dosage: 10 MILLIGRAM, QD (ON SUNDAY, TUESDAY, WEDNESDAY, FRIDAY, SATURDAY)
     Route: 048

REACTIONS (1)
  - Nasopharyngitis [Unknown]
